FAERS Safety Report 8483958-3 (Version None)
Quarter: 2012Q2

REPORT INFORMATION
  Report Type: 
  Country: None (occurrence: None)
  Receive Date: 20120402
  Receipt Date: 20110606
  Transmission Date: 20120825
  Serious: Yes (Hospitalization)
  Sender: FDA-Public Use
  Company Number: A-US2011-49942

PATIENT
  Age: 54 Year
  Sex: Female

DRUGS (2)
  1. EPOPROSTENOL SODIUM [Suspect]
     Indication: PULMONARY ARTERIAL HYPERTENSION
     Dosage: 17 NG/KG, PER MIN, INTRAVENOUS
     Route: 042
     Dates: start: 20110124
  2. TRACLEER [Concomitant]

REACTIONS (1)
  - DEVICE LEAKAGE [None]
